FAERS Safety Report 23170978 (Version 1)
Quarter: 2023Q4

REPORT INFORMATION
  Report Type: Spontaneous
  Country: JP (occurrence: JP)
  Receive Date: 20231110
  Receipt Date: 20231110
  Transmission Date: 20240110
  Serious: Yes (Life-Threatening, Hospitalization, Other)
  Sender: FDA-Public Use
  Company Number: JP-BAYER-2023A127393

PATIENT
  Age: 73 Year
  Sex: Female
  Weight: 59 kg

DRUGS (7)
  1. GADOXETATE DISODIUM [Suspect]
     Active Substance: GADOXETATE DISODIUM
     Indication: Hepatocellular carcinoma
     Dosage: 10 ML, ONCE
     Route: 042
     Dates: start: 20230907, end: 20230907
  2. GADOXETATE DISODIUM [Suspect]
     Active Substance: GADOXETATE DISODIUM
     Indication: Magnetic resonance imaging
  3. AMLODIPINE [Concomitant]
     Active Substance: AMLODIPINE BESYLATE
     Route: 048
  4. LEVOTHYROXINE SODIUM [Concomitant]
     Active Substance: LEVOTHYROXINE SODIUM
     Route: 048
  5. POLAPREZINC [Concomitant]
     Active Substance: POLAPREZINC
     Route: 048
  6. EDOXABAN TOSYLATE [Concomitant]
     Active Substance: EDOXABAN TOSYLATE
     Route: 048
  7. BISOPROLOL FUMARATE [Concomitant]
     Active Substance: BISOPROLOL FUMARATE
     Route: 048

REACTIONS (9)
  - Anaphylactic shock [Recovering/Resolving]
  - Altered state of consciousness [Recovering/Resolving]
  - Dysgeusia [Recovering/Resolving]
  - Dyspnoea [Recovering/Resolving]
  - Nausea [Recovering/Resolving]
  - Cold sweat [Recovering/Resolving]
  - Pulse abnormal [Recovered/Resolved]
  - Blood pressure immeasurable [Recovered/Resolved]
  - Malaise [Recovering/Resolving]

NARRATIVE: CASE EVENT DATE: 20230907
